FAERS Safety Report 24548617 (Version 2)
Quarter: 2024Q4

REPORT INFORMATION
  Report Type: Spontaneous
  Country: CN (occurrence: CN)
  Receive Date: 20241025
  Receipt Date: 20241028
  Transmission Date: 20250115
  Serious: Yes (Hospitalization)
  Sender: ROCHE
  Company Number: CN-ROCHE-10000115701

PATIENT
  Age: 67 Year
  Sex: Female

DRUGS (3)
  1. ENTRECTINIB [Suspect]
     Active Substance: ENTRECTINIB
     Indication: Non-small cell lung cancer
     Route: 065
  2. SAVOLITINIB [Concomitant]
     Active Substance: SAVOLITINIB
  3. CATEQUENTINIB [Concomitant]
     Active Substance: CATEQUENTINIB

REACTIONS (3)
  - Disease progression [Recovered/Resolved]
  - Pulmonary embolism [Recovered/Resolved]
  - Treatment failure [Unknown]
